FAERS Safety Report 21384920 (Version 2)
Quarter: 2022Q4

REPORT INFORMATION
  Report Type: Spontaneous
  Country: US (occurrence: US)
  Receive Date: 20220928
  Receipt Date: 20221216
  Transmission Date: 20230113
  Serious: No
  Sender: FDA-Public Use
  Company Number: US-AVEO ONCOLOGY-2022-AVEO-US000316

PATIENT

DRUGS (3)
  1. FOTIVDA [Suspect]
     Active Substance: TIVOZANIB HYDROCHLORIDE
     Indication: Renal cell carcinoma
     Dosage: 0.89 MG, DAILY 21 DAYS WITH 7 DAYS OFF (28-DAY CYCLE)
     Route: 048
     Dates: start: 20211104, end: 2022
  2. FOTIVDA [Suspect]
     Active Substance: TIVOZANIB HYDROCHLORIDE
     Dosage: 0.89 MG, DAILY 21 DAYS WITH 7 DAYS OFF (28-DAY CYCLE)
     Route: 048
     Dates: start: 2022, end: 2022
  3. FOTIVDA [Suspect]
     Active Substance: TIVOZANIB HYDROCHLORIDE
     Dosage: 0.89 MG, DAILY 21 DAYS WITH 7 DAYS OFF (28-DAY CYCLE)
     Route: 048
     Dates: start: 2022

REACTIONS (11)
  - Diarrhoea [Unknown]
  - Blood pressure increased [Recovered/Resolved]
  - Influenza [Unknown]
  - Malaise [Unknown]
  - Musculoskeletal stiffness [Unknown]
  - Intentional dose omission [Unknown]
  - Vomiting [Unknown]
  - Blood pH decreased [Unknown]
  - Headache [Recovered/Resolved]
  - Vertigo [Recovered/Resolved]
  - Insomnia [Unknown]
